FAERS Safety Report 7207763-0 (Version None)
Quarter: 2011Q1

REPORT INFORMATION
  Report Type: 
  Country: None (occurrence: None)
  Receive Date: 20110103
  Receipt Date: 20101221
  Transmission Date: 20110831
  Serious: Yes (Life-Threatening, Hospitalization)
  Sender: FDA-Public Use
  Company Number: DE-MYLANLABS-2009S1004554

PATIENT
  Age: 67 Year
  Sex: Female

DRUGS (14)
  1. PENTAERYTHRITOL TETRANITRATE [Concomitant]
     Indication: CORONARY ARTERY DISEASE
     Route: 048
     Dates: start: 20070101
  2. INSULIN ACTRAPID HUMAN [Concomitant]
     Indication: TYPE 2 DIABETES MELLITUS
     Dosage: 18-12-8-14 IU
     Route: 058
  3. CARMEN [Concomitant]
     Indication: HYPERTENSION
     Route: 048
  4. BISOPROLOL [Concomitant]
     Indication: CORONARY ARTERY DISEASE
     Route: 048
     Dates: start: 20070101
  5. PREDNISOLONE [Suspect]
     Indication: RHEUMATOID ARTHRITIS
     Route: 048
     Dates: start: 20081201
  6. FUROSEMIDE [Interacting]
     Indication: HYPERTENSION
     Route: 048
  7. MTX /00113801/ [Suspect]
     Indication: RHEUMATOID ARTHRITIS
     Route: 048
     Dates: start: 20081201
  8. FLECAINIDE ACETATE [Concomitant]
     Indication: ATRIAL FIBRILLATION
     Route: 048
  9. SIMVASTATIN [Interacting]
     Indication: CORONARY ARTERY DISEASE
     Route: 048
     Dates: start: 20070101
  10. ASPIRIN [Suspect]
     Indication: CORONARY ARTERY DISEASE
     Route: 048
     Dates: start: 20040101, end: 20090103
  11. RAMIPRIL [Concomitant]
     Indication: HYPERTENSION
     Route: 048
  12. TRAMAL [Concomitant]
     Indication: RHEUMATOID ARTHRITIS
     Route: 048
  13. FALITHROM [Suspect]
     Indication: ATRIAL FIBRILLATION
     Route: 048
     Dates: start: 20050101, end: 20090103
  14. XIPAMIDE [Interacting]
     Indication: HYPERTENSION
     Route: 048

REACTIONS (3)
  - DRUG INTERACTION [None]
  - HYPERGLYCAEMIA [None]
  - GASTROINTESTINAL HAEMORRHAGE [None]
